FAERS Safety Report 8984185 (Version 2)
Quarter: 2014Q2

REPORT INFORMATION
  Report Type: Spontaneous
  Country: CH (occurrence: CH)
  Receive Date: 20121226
  Receipt Date: 20131018
  Transmission Date: 20141212
  Serious: Yes (Hospitalization)
  Sender: FDA-Public Use
  Company Number: CH-PFIZER INC-2012325961

PATIENT
  Age: 77 Year
  Sex: Male
  Weight: 70 kg

DRUGS (8)
  1. SOLU-MEDROL [Suspect]
     Indication: NEPHRITIC SYNDROME
     Dosage: 500 MG, 1X/DAY
     Route: 042
     Dates: start: 20121108, end: 20121110
  2. IMUREK [Suspect]
     Indication: RENAL TRANSPLANT
     Dosage: 100 MG, 1X/DAY
     Route: 048
     Dates: start: 200101, end: 201211
  3. SANDIMMUN [Suspect]
     Indication: RENAL TRANSPLANT
     Dosage: 75 MG, 2X/DAY
     Route: 048
     Dates: start: 2003
  4. PREDNISOLONE [Suspect]
     Indication: NEPHRITIC SYNDROME
     Dosage: 70 MG, 1X/DAY
     Route: 048
     Dates: start: 20121112
  5. CONCOR [Concomitant]
     Dosage: 5 MG, 1X/DAY
     Route: 048
  6. DELIX [Concomitant]
     Dosage: 5 MG, 1X/DAY
     Route: 048
  7. SIMVASTATIN [Concomitant]
     Dosage: 10 MG, 1X/DAY
     Route: 048
  8. NEOTIGASON [Concomitant]
     Dosage: 10 MG, 1X/DAY
     Route: 048
     Dates: start: 20120807

REACTIONS (2)
  - Pneumonia bacterial [Recovering/Resolving]
  - Diabetes mellitus [Recovered/Resolved]
